FAERS Safety Report 9245886 (Version 1)
Quarter: 2013Q2

REPORT INFORMATION
  Report Type: Spontaneous
  Country: BR (occurrence: BR)
  Receive Date: 20130422
  Receipt Date: 20130422
  Transmission Date: 20140414
  Serious: Yes (Hospitalization)
  Sender: FDA-Public Use
  Company Number: BR-BRISTOL-MYERS SQUIBB COMPANY-18797274

PATIENT
  Age: 65 Year
  Sex: Female

DRUGS (3)
  1. ONGLYZA TABS 5 MG [Suspect]
     Indication: DIABETES MELLITUS
     Route: 048
  2. GLIFAGE [Suspect]
     Indication: DIABETES MELLITUS
  3. ATACAND [Concomitant]
     Dates: end: 201304

REACTIONS (2)
  - Retinal detachment [Recovering/Resolving]
  - Blood glucose increased [Recovering/Resolving]
